FAERS Safety Report 23773652 (Version 1)
Quarter: 2024Q2

REPORT INFORMATION
  Report Type: Spontaneous
  Country: AU (occurrence: AU)
  Receive Date: 20240423
  Receipt Date: 20240423
  Transmission Date: 20240716
  Serious: Yes (Other)
  Sender: FDA-Public Use
  Company Number: AU-SA-2024SA116949

PATIENT
  Age: 10 Year
  Sex: Male

DRUGS (12)
  1. RIFAMPIN [Suspect]
     Active Substance: RIFAMPIN
     Indication: Borderline leprosy
  2. MESALAMINE [Suspect]
     Active Substance: MESALAMINE
     Indication: Borderline leprosy
  3. CLOFAZIMINE [Suspect]
     Active Substance: CLOFAZIMINE
     Indication: Borderline leprosy
  4. CYCLOSERINE [Suspect]
     Active Substance: CYCLOSERINE
     Indication: Borderline leprosy
  5. DAPSONE [Suspect]
     Active Substance: DAPSONE
     Indication: Borderline leprosy
  6. AMIKACIN SULFATE [Concomitant]
     Active Substance: AMIKACIN SULFATE
     Indication: Borderline leprosy
     Route: 042
  7. ISONIAZID [Concomitant]
     Active Substance: ISONIAZID
     Indication: Borderline leprosy
  8. ETHAMBUTOL HYDROCHLORIDE [Concomitant]
     Active Substance: ETHAMBUTOL HYDROCHLORIDE
     Indication: Borderline leprosy
  9. MOXIFLOXACIN [Concomitant]
     Active Substance: MOXIFLOXACIN
     Indication: Borderline leprosy
     Route: 048
  10. PHENETICILLIN [Concomitant]
     Active Substance: PHENETICILLIN
     Indication: Prophylaxis
  11. PYRAZINAMIDE [Concomitant]
     Active Substance: PYRAZINAMIDE
     Indication: Borderline leprosy
  12. PYRIDOXINE HYDROCHLORIDE [Concomitant]
     Active Substance: PYRIDOXINE HYDROCHLORIDE
     Indication: Borderline leprosy

REACTIONS (9)
  - Ascites [Recovered/Resolved]
  - Glomerulonephritis acute [Recovered/Resolved]
  - Haematuria [Recovered/Resolved]
  - Hypertension [Recovered/Resolved]
  - Oedema peripheral [Recovered/Resolved]
  - Proteinuria [Recovered/Resolved]
  - Pulmonary oedema [Recovered/Resolved]
  - Renal impairment [Recovered/Resolved]
  - Type 2 lepra reaction [Recovering/Resolving]
